FAERS Safety Report 9637333 (Version 1)
Quarter: 2013Q4

REPORT INFORMATION
  Report Type: Report from Study
  Country: PH (occurrence: PH)
  Receive Date: 20131022
  Receipt Date: 20131022
  Transmission Date: 20140711
  Serious: Yes (Death)
  Sender: FDA-Public Use
  Company Number: PHHY2013PH118750

PATIENT
  Sex: Female

DRUGS (3)
  1. GLIVEC [Suspect]
     Dosage: 400 MG, DAILY
     Route: 048
     Dates: start: 20111206, end: 20130201
  2. GLIVEC [Suspect]
     Dosage: 500 MG, DAILY
     Route: 048
     Dates: start: 20130201, end: 20130909
  3. GLIVEC [Suspect]
     Dosage: 600 MG, DAILY
     Route: 048
     Dates: start: 20130909

REACTIONS (1)
  - Death [Fatal]
